FAERS Safety Report 5707891-2 (Version None)
Quarter: 2008Q2

REPORT INFORMATION
  Report Type: 
  Country: None (occurrence: None)
  Receive Date: 20080414
  Receipt Date: 20080328
  Transmission Date: 20081010
  Serious: Yes (Hospitalization)
  Sender: FDA-Public Use
  Company Number: 8031278

PATIENT
  Age: 6 Year
  Sex: Male

DRUGS (2)
  1. PREDNISOLONE [Suspect]
     Indication: DUCHENNE MUSCULAR DYSTROPHY
  2. PREDNISOLONE [Suspect]
     Indication: DUCHENNE MUSCULAR DYSTROPHY
     Dosage: 15 MG 1/D

REACTIONS (5)
  - FALL [None]
  - HYPERHIDROSIS [None]
  - MYOGLOBINURIA [None]
  - RHABDOMYOLYSIS [None]
  - URINARY TRACT INFECTION [None]
